FAERS Safety Report 6025326-X (Version None)
Quarter: 2008Q4

REPORT INFORMATION
  Report Type: 
  Country: None (occurrence: None)
  Receive Date: 20081229
  Receipt Date: 20081212
  Transmission Date: 20090506
  Serious: No
  Sender: FDA-Public Use
  Company Number: 2008-188447-NL

PATIENT
  Age: 51 Year
  Sex: Female

DRUGS (7)
  1. MIRTAZAPINE [Suspect]
     Indication: DEPRESSION
     Dosage: 30 MG
  2. ZOLMITRIPTAN [Concomitant]
  3. ZALDIAR [Concomitant]
  4. PARACETAMOL [Concomitant]
  5. IBUPROFEN TABLETS [Concomitant]
  6. PREDNISOLONE [Concomitant]
  7. DORMIN [Concomitant]

REACTIONS (1)
  - TACHYCARDIA [None]
